FAERS Safety Report 4879699-1 (Version None)
Quarter: 2006Q1

REPORT INFORMATION
  Report Type: 
  Country: None (occurrence: None)
  Receive Date: 20060113
  Receipt Date: 20060104
  Transmission Date: 20060701
  Serious: Yes (Other)
  Sender: FDA-Public Use
  Company Number: PHEH2006US00563

PATIENT
  Age: 81 Year
  Sex: Male

DRUGS (2)
  1. DIOVAN [Suspect]
     Indication: HYPERTENSION
     Dosage: 80 MG, QD
     Route: 048
     Dates: start: 20030101
  2. COREG [Concomitant]
     Indication: HEART RATE IRREGULAR
     Dosage: UNK, UNK
     Dates: start: 20040101

REACTIONS (2)
  - CARDIAC PACEMAKER INSERTION [None]
  - DRUG INEFFECTIVE [None]
